FAERS Safety Report 9352762 (Version 2)
Quarter: 2013Q2

REPORT INFORMATION
  Report Type: Report from Study
  Country: AR (occurrence: AR)
  Receive Date: 20130618
  Receipt Date: 20130628
  Transmission Date: 20140414
  Serious: Yes (Other)
  Sender: FDA-Public Use
  Company Number: AR-ROCHE-1237047

PATIENT
  Sex: Male

DRUGS (1)
  1. RANIBIZUMAB [Suspect]
     Indication: LACRIMATION INCREASED
     Route: 050
     Dates: start: 2012

REACTIONS (3)
  - Maculopathy [Recovering/Resolving]
  - Drug ineffective [Unknown]
  - Visual impairment [Recovering/Resolving]
